FAERS Safety Report 6564644-3 (Version None)
Quarter: 2010Q1

REPORT INFORMATION
  Report Type: 
  Country: None (occurrence: None)
  Receive Date: 20100201
  Receipt Date: 20100129
  Transmission Date: 20100710
  Serious: Yes (Hospitalization)
  Sender: FDA-Public Use
  Company Number: JP-ASTRAZENECA-2010SE03985

PATIENT
  Age: 76 Year
  Sex: Male

DRUGS (2)
  1. BLOPRESS [Suspect]
     Route: 048
  2. TICLOPIDINE HYDROCHLORIDE [Suspect]
     Route: 048

REACTIONS (1)
  - SYSTEMIC LUPUS ERYTHEMATOSUS [None]
